FAERS Safety Report 26048011 (Version 1)
Quarter: 2025Q4

REPORT INFORMATION
  Report Type: Spontaneous
  Country: JP (occurrence: JP)
  Receive Date: 20251114
  Receipt Date: 20251114
  Transmission Date: 20260117
  Serious: Yes (Other)
  Sender: BRISTOL-MYERS SQUIBB COMPANY
  Company Number: JP-ONO-2024JP011901

PATIENT
  Age: 78 Year
  Sex: Male

DRUGS (1)
  1. OPDIVO [Suspect]
     Active Substance: NIVOLUMAB
     Indication: Bladder transitional cell carcinoma
     Route: 041

REACTIONS (3)
  - Interstitial lung disease [Unknown]
  - Taste disorder [Recovering/Resolving]
  - Bladder transitional cell carcinoma recurrent [Unknown]

NARRATIVE: CASE EVENT DATE: 20240313
